FAERS Safety Report 15058620 (Version 1)
Quarter: 2018Q2

REPORT INFORMATION
  Report Type: Spontaneous
  Country: ES (occurrence: ES)
  Receive Date: 20180625
  Receipt Date: 20180625
  Transmission Date: 20180711
  Serious: Yes (Hospitalization, Other)
  Sender: FDA-Public Use
  Company Number: PHHY2018ES026810

PATIENT
  Age: 65 Year
  Sex: Male

DRUGS (8)
  1. VILDAGLIPTINA [Concomitant]
     Indication: PRODUCT USED FOR UNKNOWN INDICATION
     Route: 065
  2. PREDNISONE. [Concomitant]
     Active Substance: PREDNISONE
     Indication: PRODUCT USED FOR UNKNOWN INDICATION
     Dosage: 10 MG, UNK
     Route: 065
  3. AMLODIPINE [Concomitant]
     Active Substance: AMLODIPINE BESYLATE
     Indication: HYPERTENSION
     Dosage: 5 MG, UNK
     Route: 065
  4. VOTRIENT [Suspect]
     Active Substance: PAZOPANIB HYDROCHLORIDE
     Indication: RENAL CELL CARCINOMA
     Dosage: UNK
     Route: 065
  5. VALSARTAN. [Concomitant]
     Active Substance: VALSARTAN
     Indication: HYPERTENSION
     Dosage: 160 MG, UNK
     Route: 065
  6. HIDROCLOROTIAZIDE [Concomitant]
     Active Substance: HYDROCHLOROTHIAZIDE
     Indication: HYPERTENSION
     Dosage: 12.5 MG, UNK
     Route: 065
  7. VOTRIENT [Suspect]
     Active Substance: PAZOPANIB HYDROCHLORIDE
     Indication: CLEAR CELL RENAL CELL CARCINOMA
     Dosage: 600 MG, UNK
     Route: 048
     Dates: start: 20180213
  8. VOTRIENT [Suspect]
     Active Substance: PAZOPANIB HYDROCHLORIDE
     Dosage: 800 MG, UNK
     Route: 048
     Dates: start: 20180309

REACTIONS (17)
  - Acute respiratory failure [Unknown]
  - Renal cell carcinoma [Unknown]
  - Malignant neoplasm progression [Unknown]
  - Retroperitoneal lymphadenopathy [Unknown]
  - Cyst [Unknown]
  - Haemangioma [Unknown]
  - Toxic skin eruption [Unknown]
  - Perivascular dermatitis [Unknown]
  - Hepatic lesion [Unknown]
  - Alveolitis allergic [Unknown]
  - Dermatitis psoriasiform [Unknown]
  - Rash pruritic [Not Recovered/Not Resolved]
  - Hepatic steatosis [Unknown]
  - Transitional cell carcinoma [Unknown]
  - Bone pain [Not Recovered/Not Resolved]
  - Clear cell renal cell carcinoma [Unknown]
  - Recurrent cancer [Unknown]

NARRATIVE: CASE EVENT DATE: 20170628
